FAERS Safety Report 5534862-1 (Version None)
Quarter: 2007Q4

REPORT INFORMATION
  Report Type: 
  Country: None (occurrence: None)
  Receive Date: 20071205
  Receipt Date: 20071112
  Transmission Date: 20080405
  Serious: No
  Sender: FDA-Public Use
  Company Number: US-BOEHRINGER INGELHEIM PHARMACEUTICALS, INC.-2007-BP-24356BP

PATIENT
  Age: 79 Year
  Sex: Female

DRUGS (4)
  1. ZANTAC 75 [Suspect]
     Indication: DYSPEPSIA
     Route: 048
     Dates: start: 20071001
  2. ZANTAC 75 [Suspect]
  3. CALCIUM [Concomitant]
  4. NIACIN [Concomitant]

REACTIONS (2)
  - ALOPECIA [None]
  - PARAESTHESIA [None]
